FAERS Safety Report 22853119 (Version 2)
Quarter: 2024Q2

REPORT INFORMATION
  Report Type: Report from Study
  Country: US (occurrence: US)
  Receive Date: 20230823
  Receipt Date: 20240614
  Transmission Date: 20240715
  Serious: Yes (Other)
  Sender: FDA-Public Use
  Company Number: US-ABBVIE-4313088

PATIENT
  Age: 66 Year
  Sex: Male

DRUGS (1)
  1. HUMIRA [Suspect]
     Active Substance: ADALIMUMAB
     Indication: Psoriasis
     Dosage: FORM STRENGTH: 40 MG CF
     Route: 058
     Dates: start: 20220217

REACTIONS (3)
  - Pulmonary thrombosis [Unknown]
  - Therapeutic product effect incomplete [Unknown]
  - Scar [Unknown]

NARRATIVE: CASE EVENT DATE: 20230301
